FAERS Safety Report 12613808 (Version 1)
Quarter: 2016Q3

REPORT INFORMATION
  Report Type: Spontaneous
  Country: US (occurrence: US)
  Receive Date: 20160802
  Receipt Date: 20160802
  Transmission Date: 20161109
  Serious: No
  Sender: FDA-Public Use
  Company Number: US-PFIZER INC-2016349868

PATIENT
  Sex: Male

DRUGS (1)
  1. SUTENT [Suspect]
     Active Substance: SUNITINIB MALATE
     Dosage: 37.5 MG, 1X/DAY
     Route: 048
     Dates: start: 20160420

REACTIONS (8)
  - Mucosal inflammation [Unknown]
  - Weight decreased [Unknown]
  - Pain in extremity [Unknown]
  - Asthenia [Unknown]
  - Diarrhoea [Unknown]
  - Dysgeusia [Unknown]
  - Decreased appetite [Unknown]
  - Vomiting [Unknown]
